FAERS Safety Report 13492344 (Version 1)
Quarter: 2017Q2

REPORT INFORMATION
  Report Type: Spontaneous
  Country: DE (occurrence: DE)
  Receive Date: 20170427
  Receipt Date: 20170427
  Transmission Date: 20170830
  Serious: Yes (Hospitalization)
  Sender: FDA-Public Use
  Company Number: DE-TEVA-762708GER

PATIENT
  Age: 88 Year
  Sex: Female

DRUGS (7)
  1. DOXEPIN [Suspect]
     Active Substance: DOXEPIN
     Indication: DEPRESSION
     Dosage: 100 MILLIGRAM DAILY;
     Route: 065
  2. LORAZEPAM. [Concomitant]
     Active Substance: LORAZEPAM
     Route: 065
  3. CINNARIZINE [Suspect]
     Active Substance: CINNARIZINE
     Route: 065
  4. AMLODIPINE [Concomitant]
     Active Substance: AMLODIPINE BESYLATE
     Route: 065
  5. DOXEPIN [Suspect]
     Active Substance: DOXEPIN
     Dosage: 200 MILLIGRAM DAILY;
     Route: 065
  6. DIMENHYDRINATE. [Suspect]
     Active Substance: DIMENHYDRINATE
     Route: 065
  7. RAMIPRIL. [Concomitant]
     Active Substance: RAMIPRIL
     Route: 065

REACTIONS (5)
  - Inappropriate antidiuretic hormone secretion [Recovered/Resolved]
  - Coma [Recovered/Resolved]
  - Overdose [Recovered/Resolved]
  - Autonomic neuropathy [Unknown]
  - Hyponatraemia [Recovered/Resolved]
